FAERS Safety Report 7479238-5 (Version None)
Quarter: 2011Q2

REPORT INFORMATION
  Report Type: 
  Country: None (occurrence: None)
  Receive Date: 20110513
  Receipt Date: 20110504
  Transmission Date: 20111010
  Serious: Yes (Other)
  Sender: FDA-Public Use
  Company Number: B0717445A

PATIENT
  Sex: Male

DRUGS (6)
  1. ZITHROMAX [Concomitant]
     Route: 065
     Dates: start: 20081209, end: 20081217
  2. NORVIR [Concomitant]
     Indication: HIV INFECTION
     Route: 065
     Dates: end: 20081217
  3. PREZISTA [Concomitant]
     Indication: HIV INFECTION
     Route: 065
     Dates: end: 20081217
  4. ISENTRESS [Concomitant]
     Indication: HIV INFECTION
     Route: 065
     Dates: end: 20081217
  5. CELSENTRI [Suspect]
     Indication: HIV INFECTION
     Route: 048
     Dates: start: 20081124, end: 20081217
  6. APRANAX [Concomitant]
     Route: 065
     Dates: start: 20081209, end: 20081217

REACTIONS (2)
  - ABDOMINAL PAIN [None]
  - HEPATOCELLULAR INJURY [None]
